FAERS Safety Report 13533794 (Version 1)
Quarter: 2017Q2

REPORT INFORMATION
  Report Type: Spontaneous
  Country: US (occurrence: US)
  Receive Date: 20170510
  Receipt Date: 20170510
  Transmission Date: 20170830
  Serious: No
  Sender: FDA-Public Use
  Company Number: US-SA-2017SA056530

PATIENT
  Age: 50 Year
  Sex: Female

DRUGS (4)
  1. XYZAL ALLERGY 24HR [Suspect]
     Active Substance: LEVOCETIRIZINE DIHYDROCHLORIDE
     Indication: URTICARIA
     Dosage: START DATE 3 DAYS AGO
     Route: 065
  2. XYZAL ALLERGY 24HR [Suspect]
     Active Substance: LEVOCETIRIZINE DIHYDROCHLORIDE
     Indication: URTICARIA
     Dosage: START DATE 10 YEARS AGO
     Route: 065
  3. XYZAL ALLERGY 24HR [Suspect]
     Active Substance: LEVOCETIRIZINE DIHYDROCHLORIDE
     Indication: URTICARIA
     Dosage: START DATE 3 DAYS AGO
     Route: 065
  4. XYZAL ALLERGY 24HR [Suspect]
     Active Substance: LEVOCETIRIZINE DIHYDROCHLORIDE
     Indication: URTICARIA
     Dosage: START DATE 3 DAYS AGO
     Route: 065

REACTIONS (8)
  - Product odour abnormal [Unknown]
  - Hypersensitivity [Unknown]
  - Chest pain [Unknown]
  - Urticaria [Unknown]
  - Headache [Unknown]
  - Epistaxis [Unknown]
  - Product taste abnormal [Unknown]
  - Palpitations [Unknown]
